FAERS Safety Report 9990472 (Version 1)
Quarter: 2014Q1

REPORT INFORMATION
  Report Type: Report from Study
  Country: US (occurrence: US)
  Receive Date: 20140310
  Receipt Date: 20140310
  Transmission Date: 20141002
  Serious: No
  Sender: FDA-Public Use
  Company Number: US-ABBVIE-13P-163-1135312-00

PATIENT
  Age: 30 Year
  Sex: Male

DRUGS (12)
  1. HUMIRA [Suspect]
     Indication: COLITIS ULCERATIVE
     Dates: start: 201303
  2. LIALDA [Concomitant]
     Indication: COLITIS
     Dosage: 3 TABLETS DAILY
  3. OMEGA 3 [Concomitant]
     Indication: COLITIS
  4. NEXIUM [Concomitant]
     Indication: GASTROOESOPHAGEAL REFLUX DISEASE
  5. MULTIVITAMIN [Concomitant]
     Indication: PHYTOTHERAPY
     Dosage: DAILY
  6. FOLIC ACID [Concomitant]
     Indication: COLITIS
     Dosage: DAILY
  7. PROBIOTIC [Concomitant]
     Indication: COLITIS
     Dosage: ONE IN AM AND ONE IN PM
  8. PREDNISONE [Concomitant]
     Indication: COLITIS
     Dosage: 5 MG DAILY
  9. IMURAN [Concomitant]
     Indication: COLITIS
  10. WELLBUTRIN [Concomitant]
     Indication: DEPRESSION
     Dosage: DAILY
  11. CYMBALTA [Concomitant]
     Indication: DEPRESSION
     Dosage: 60 MG DAILY
  12. FLONASE [Concomitant]
     Indication: SEASONAL ALLERGY
     Dosage: SPRAYS EACH NOSTRIL

REACTIONS (5)
  - Throat irritation [Not Recovered/Not Resolved]
  - Nasal congestion [Not Recovered/Not Resolved]
  - Respiratory tract congestion [Not Recovered/Not Resolved]
  - Nasal congestion [Not Recovered/Not Resolved]
  - Productive cough [Not Recovered/Not Resolved]
